FAERS Safety Report 6274041-6 (Version None)
Quarter: 2009Q3

REPORT INFORMATION
  Report Type: 
  Country: None (occurrence: None)
  Receive Date: 20090720
  Receipt Date: 20090708
  Transmission Date: 20100115
  Serious: Yes (Death)
  Sender: FDA-Public Use
  Company Number: GB-ELI_LILLY_AND_COMPANY-GB200905002651

PATIENT
  Sex: Male

DRUGS (6)
  1. ZYPREXA [Suspect]
     Dosage: 10 MG, UNK
     Dates: start: 20081231, end: 20090101
  2. ZYPREXA [Suspect]
     Dosage: 5 MG, 3/D
     Dates: start: 20090101, end: 20090101
  3. ZYPREXA [Suspect]
     Dosage: 20 MG, DAILY (1/D)
     Dates: start: 20090501
  4. DIAZEPAM [Concomitant]
     Dosage: UNK, UNK
  5. LORAZEPAM [Concomitant]
     Dosage: UNK, UNK
  6. CARDIAC THERAPY [Concomitant]
     Indication: CARDIAC DISORDER
     Dosage: UNK, UNK

REACTIONS (1)
  - MYOCARDIAL INFARCTION [None]
